FAERS Safety Report 5669789-8 (Version None)
Quarter: 2008Q1

REPORT INFORMATION
  Report Type: 
  Country: None (occurrence: None)
  Receive Date: 20080317
  Receipt Date: 20080305
  Transmission Date: 20080703
  Serious: Yes (Other)
  Sender: FDA-Public Use
  Company Number: GB-PFIZER INC-2008021516

PATIENT
  Sex: Male

DRUGS (11)
  1. DOXAZOSIN MESYLATE [Suspect]
     Indication: HYPERTENSION
  2. ASPIRIN [Concomitant]
     Dosage: DAILY DOSE:75MG
  3. ATENOLOL [Concomitant]
     Dosage: DAILY DOSE:100MG
  4. EZETIMIBE [Concomitant]
     Dosage: DAILY DOSE:10MG
  5. FUROSEMIDE [Concomitant]
  6. ISOSORBIDE MONONITRATE [Concomitant]
  7. LISINOPRIL [Concomitant]
  8. LERCANIDIPINE [Concomitant]
  9. METFORMIN HCL [Concomitant]
  10. SIMVASTATIN [Concomitant]
     Dosage: DAILY DOSE:40MG
  11. NOVOLOG MIX 70/30 [Concomitant]
     Dosage: TEXT:30 TWICE DAILY

REACTIONS (3)
  - BLOOD GLUCOSE INCREASED [None]
  - CORONARY ARTERY OCCLUSION [None]
  - INTERMITTENT CLAUDICATION [None]
